FAERS Safety Report 6826244-7 (Version None)
Quarter: 2010Q3

REPORT INFORMATION
  Report Type: 
  Country: None (occurrence: None)
  Receive Date: 20100709
  Receipt Date: 20100626
  Transmission Date: 20110219
  Serious: Yes (Other)
  Sender: FDA-Public Use
  Company Number: PHHY2010MX42265

PATIENT
  Age: 60 Year
  Sex: Female

DRUGS (4)
  1. ACLASTA [Suspect]
     Indication: OSTEOPOROSIS
     Dosage: 5 MG/100ML PER YEAR
     Route: 042
     Dates: start: 20090901
  2. LEVOTHYROXINE SODIUM [Concomitant]
  3. METOPROLOL [Concomitant]
  4. HYDROCHLOROTHIAZIDE [Concomitant]

REACTIONS (4)
  - BONE PAIN [None]
  - PAIN [None]
  - PYREXIA [None]
  - RESPIRATORY FAILURE [None]
